FAERS Safety Report 13012570 (Version 2)
Quarter: 2016Q4

REPORT INFORMATION
  Report Type: Spontaneous
  Country: NO (occurrence: NO)
  Receive Date: 20161209
  Receipt Date: 20161213
  Transmission Date: 20170207
  Serious: Yes (Death, Other)
  Sender: FDA-Public Use
  Company Number: NO-ORION CORPORATION ORION PHARMA-16_00002042

PATIENT
  Age: 44 Year
  Sex: Female

DRUGS (6)
  1. CYCLOSPORIN A [Suspect]
     Active Substance: CYCLOSPORINE
     Indication: STEM CELL TRANSPLANT
  2. CYCLOSPORIN A [Suspect]
     Active Substance: CYCLOSPORINE
     Indication: PROPHYLAXIS AGAINST GRAFT VERSUS HOST DISEASE
     Route: 065
  3. METHOTREXATE. [Suspect]
     Active Substance: METHOTREXATE
     Indication: IMMUNOSUPPRESSANT DRUG THERAPY
  4. METHOTREXATE. [Suspect]
     Active Substance: METHOTREXATE
     Indication: STEM CELL TRANSPLANT
  5. METHOTREXATE. [Suspect]
     Active Substance: METHOTREXATE
     Indication: PROPHYLAXIS AGAINST GRAFT VERSUS HOST DISEASE
     Route: 065
  6. CYCLOSPORIN A [Suspect]
     Active Substance: CYCLOSPORINE
     Indication: IMMUNOSUPPRESSANT DRUG THERAPY

REACTIONS (2)
  - Multiple organ dysfunction syndrome [Fatal]
  - Acute graft versus host disease in intestine [Recovering/Resolving]
